FAERS Safety Report 8810189 (Version 7)
Quarter: 2013Q3

REPORT INFORMATION
  Report Type: Spontaneous
  Country: US (occurrence: US)
  Receive Date: 20120926
  Receipt Date: 20130711
  Transmission Date: 20140515
  Serious: Yes (Hospitalization, Other)
  Sender: FDA-Public Use
  Company Number: US-MERCK-1209USA010331

PATIENT
  Sex: Female
  Weight: 68.27 kg

DRUGS (7)
  1. FOSAMAX [Suspect]
     Indication: OSTEOPOROSIS
     Dosage: 10 MG, QD
     Route: 048
     Dates: start: 199509
  2. FOSAMAX [Suspect]
     Indication: OSTEOPENIA
     Dosage: 70 MG, QW
     Route: 048
     Dates: start: 200110
  3. ALENDRONATE SODIUM [Suspect]
     Indication: OSTEOPOROSIS
     Dosage: 70 MG, QW
     Route: 048
     Dates: start: 200802, end: 201002
  4. REMICADE [Concomitant]
     Indication: COLITIS ULCERATIVE
     Dosage: UNK
     Dates: start: 2000, end: 2012
  5. METHOTREXATE [Concomitant]
     Indication: COLITIS ULCERATIVE
     Dosage: UNK UNK, TIW
     Dates: start: 1990
  6. CALCIUM (UNSPECIFIED) [Concomitant]
     Indication: OSTEOPENIA
  7. VITAMIN D (UNSPECIFIED) [Concomitant]
     Indication: OSTEOPENIA

REACTIONS (73)
  - Femur fracture [Unknown]
  - Medical device implantation [Unknown]
  - Tibia fracture [Unknown]
  - Femur fracture [Unknown]
  - Open reduction of fracture [Unknown]
  - Medical device removal [Unknown]
  - Anaemia postoperative [Recovering/Resolving]
  - Leukocytosis [Recovered/Resolved]
  - Open reduction of fracture [Unknown]
  - Medical device removal [Unknown]
  - Hip arthroplasty [Unknown]
  - Procedural hypotension [Unknown]
  - Removal of internal fixation [Unknown]
  - Tachycardia [Recovered/Resolved]
  - Pneumonia [Unknown]
  - Impaired healing [Unknown]
  - Ankle fracture [Unknown]
  - Open reduction of fracture [Unknown]
  - Impaired self-care [Unknown]
  - Lung neoplasm malignant [Unknown]
  - Open reduction of fracture [Unknown]
  - Tibia fracture [Unknown]
  - Internal fixation of fracture [Unknown]
  - Tibia fracture [Unknown]
  - Fall [Unknown]
  - Balance disorder [Unknown]
  - Gait disturbance [Unknown]
  - Limb asymmetry [Unknown]
  - Pyrexia [Unknown]
  - Fracture nonunion [Unknown]
  - Fracture nonunion [Unknown]
  - Hand fracture [Unknown]
  - Arthroscopy [Unknown]
  - Hypertension [Unknown]
  - Hypercholesterolaemia [Unknown]
  - Depression [Unknown]
  - Anxiety [Unknown]
  - Herpes zoster [Unknown]
  - Insomnia [Unknown]
  - Meniscus removal [Unknown]
  - Fall [Unknown]
  - Anaemia postoperative [Unknown]
  - Iron deficiency anaemia [Unknown]
  - Urinary tract infection [Recovering/Resolving]
  - Ovarian failure [Unknown]
  - Hypotension [Unknown]
  - Skin fragility [Unknown]
  - Skin atrophy [Unknown]
  - Pulmonary mass [Unknown]
  - Medical device pain [Unknown]
  - Arthropathy [Unknown]
  - Balance disorder [Unknown]
  - Fall [Unknown]
  - Neuropathy peripheral [Unknown]
  - Complex regional pain syndrome [Unknown]
  - Arthropathy [Unknown]
  - Skin hyperpigmentation [Unknown]
  - Dizziness postural [Unknown]
  - Infection [Unknown]
  - Ankle operation [Unknown]
  - Foot fracture [Unknown]
  - Foot operation [Unknown]
  - Tension headache [Unknown]
  - Migraine [Unknown]
  - Adenotonsillectomy [Unknown]
  - Female sterilisation [Unknown]
  - Pleurisy [Unknown]
  - Hypersensitivity [Unknown]
  - Asthenia [Unknown]
  - Constipation [Unknown]
  - Arthralgia [Unknown]
  - Arthralgia [Unknown]
  - Gastrooesophageal reflux disease [Unknown]
